FAERS Safety Report 7681547-1 (Version None)
Quarter: 2011Q3

REPORT INFORMATION
  Report Type: 
  Country: None (occurrence: None)
  Receive Date: 20110812
  Receipt Date: 20110808
  Transmission Date: 20111222
  Serious: Yes (Other)
  Sender: FDA-Public Use
  Company Number: PHHY2011US42052

PATIENT
  Sex: Male
  Weight: 90.703 kg

DRUGS (6)
  1. EXJADE [Suspect]
     Dosage: 1875 MG, (3-500 MG, 1-125 MG AND 1-250 MG TABLETS) AND TAKE BY MOUTH EVERY DAY
     Route: 048
  2. LISINOPRIL [Concomitant]
     Dosage: 10 MG, UNK
  3. FUROSEMIDE [Concomitant]
     Dosage: 20 MG, UNK
  4. GLUCOSAMINE [Concomitant]
     Dosage: 1000 UNK, UNK
  5. KLOR-CON [Concomitant]
     Dosage: 10 MG, UNK
  6. IBUPROFEN [Concomitant]
     Dosage: 200 MG, UNK

REACTIONS (6)
  - DYSPNOEA [None]
  - NEPHROLITHIASIS [None]
  - DIZZINESS [None]
  - NAUSEA [None]
  - DIARRHOEA [None]
  - ABDOMINAL DISCOMFORT [None]
